FAERS Safety Report 17748240 (Version 1)
Quarter: 2020Q2

REPORT INFORMATION
  Report Type: Spontaneous
  Country: FR (occurrence: FR)
  Receive Date: 20200505
  Receipt Date: 20200505
  Transmission Date: 20200714
  Serious: Yes (Life-Threatening)
  Sender: FDA-Public Use
  Company Number: FR-TAKEDA-2020TEU004476

PATIENT
  Age: 57 Year
  Sex: Female
  Weight: 67.5 kg

DRUGS (3)
  1. LERCAN [Suspect]
     Active Substance: LERCANIDIPINE
     Indication: PRODUCT USED FOR UNKNOWN INDICATION
     Dosage: 10 MILLIGRAM, QD
     Route: 048
     Dates: start: 20200319, end: 20200403
  2. LANSOPRAZOLE. [Suspect]
     Active Substance: LANSOPRAZOLE
     Indication: PROPHYLAXIS
     Dosage: 15 MILLIGRAM, QD
     Route: 048
     Dates: start: 202001, end: 20200403
  3. IOMERON [Suspect]
     Active Substance: IOMEPROL
     Indication: SCAN BRAIN
     Dosage: UNK
     Route: 042
     Dates: start: 202001

REACTIONS (2)
  - Multiple organ dysfunction syndrome [Recovered/Resolved]
  - Toxic skin eruption [Recovering/Resolving]

NARRATIVE: CASE EVENT DATE: 20200403
